FAERS Safety Report 6662863-9 (Version None)
Quarter: 2010Q1

REPORT INFORMATION
  Report Type: 
  Country: None (occurrence: None)
  Receive Date: 20100322
  Receipt Date: 20100315
  Transmission Date: 20100710
  Serious: No
  Sender: FDA-Public Use
  Company Number: 2010-00337

PATIENT
  Age: 45 Year
  Sex: Female

DRUGS (3)
  1. ZICAM COLD REMEDY GEL SWABS [Suspect]
     Indication: NASOPHARYNGITIS
     Dosage: BID, ON/OFF 2-3 MONTHS : APX EARLY 2009-MID 2009
     Dates: start: 20090101, end: 20090101
  2. SINGULAIR [Concomitant]
  3. MULTIPLE VITAMINS + MINERALS [Concomitant]

REACTIONS (2)
  - ANOSMIA [None]
  - NASAL DISCOMFORT [None]
